FAERS Safety Report 5517689-6 (Version None)
Quarter: 2007Q4

REPORT INFORMATION
  Report Type: 
  Country: None (occurrence: None)
  Receive Date: 20071114
  Receipt Date: 20071107
  Transmission Date: 20080405
  Serious: Yes (Other)
  Sender: FDA-Public Use
  Company Number: MX-ELI_LILLY_AND_COMPANY-MX200710003748

PATIENT
  Sex: Female

DRUGS (3)
  1. STRATTERA [Suspect]
     Indication: ATTENTION DEFICIT/HYPERACTIVITY DISORDER
     Dosage: 10 MG, UNKNOWN
     Route: 065
  2. STRATTERA [Suspect]
     Dosage: 18 MG, UNKNOWN
     Route: 065
  3. STRATTERA [Suspect]
     Dosage: 25 MG, DAILY (1/D)
     Route: 065
     Dates: start: 20050101

REACTIONS (1)
  - CONVULSION [None]
